FAERS Safety Report 6419912-2 (Version None)
Quarter: 2009Q4

REPORT INFORMATION
  Report Type: 
  Country: None (occurrence: None)
  Receive Date: 20091014
  Receipt Date: 20090703
  Transmission Date: 20100525
  Serious: Yes (Other)
  Sender: FDA-Public Use
  Company Number: 2009RR-25473

PATIENT
  Age: 61 Year
  Sex: Male
  Weight: 76 kg

DRUGS (2)
  1. ENALAPRIL MALEATE [Suspect]
     Indication: HYPERTENSION
     Dosage: 40 MG, QD, ORAL
     Route: 048
     Dates: start: 20011220
  2. ENALAPRIL MALEATE AND HYDROCHLOROTHIAZIDE [Suspect]
     Indication: HYPERTENSION
     Dosage: ORAL
     Route: 048
     Dates: start: 20090401

REACTIONS (1)
  - PANCREATITIS ACUTE [None]
